FAERS Safety Report 6727504-0 (Version None)
Quarter: 2010Q2

REPORT INFORMATION
  Report Type: 
  Country: None (occurrence: None)
  Receive Date: 20100517
  Receipt Date: 20100504
  Transmission Date: 20101027
  Serious: Yes (Hospitalization)
  Sender: FDA-Public Use
  Company Number: FR-SANOFI-AVENTIS-2010SA025813

PATIENT
  Age: 87 Year
  Sex: Male

DRUGS (12)
  1. DI ANTALVIC [Suspect]
     Indication: NECK PAIN
     Route: 048
     Dates: start: 20100322, end: 20100324
  2. LASIX [Suspect]
     Indication: DRUG USE FOR UNKNOWN INDICATION
     Route: 048
  3. APRANAX [Suspect]
     Indication: NECK PAIN
     Route: 048
     Dates: start: 20100322, end: 20100324
  4. RAMIPRIL [Suspect]
     Indication: DRUG USE FOR UNKNOWN INDICATION
     Route: 048
     Dates: end: 20100324
  5. ATORVASTATIN [Concomitant]
  6. KARDEGIC [Concomitant]
  7. SINEMET [Concomitant]
  8. ZOLPIDEM [Concomitant]
  9. METFORMIN HYDROCHLORIDE [Concomitant]
  10. LYRICA [Concomitant]
  11. GARDENAL [Concomitant]
  12. DOMPERIDONE [Concomitant]

REACTIONS (6)
  - BRADYCARDIA [None]
  - HYPERKALAEMIA [None]
  - HYPOTHERMIA [None]
  - MALAISE [None]
  - RENAL FAILURE ACUTE [None]
  - SINUS ARRHYTHMIA [None]
